FAERS Safety Report 7884768 (Version 5)
Quarter: 2018Q3

REPORT INFORMATION
  Report Type: Spontaneous
  Country: US (occurrence: US)
  Receive Date: 20110405
  Receipt Date: 20180823
  Transmission Date: 20181010
  Serious: Yes (Other)
  Sender: FDA-Public Use
  Company Number: US-PFIZER INC-2010116149

PATIENT
  Age: 59 Year
  Sex: Female

DRUGS (1)
  1. LIPITOR [Suspect]
     Active Substance: ATORVASTATIN CALCIUM
     Indication: HYPERLIPIDAEMIA
     Dosage: 10 MG, 1X/DAY
     Route: 048
     Dates: start: 2002, end: 2008

REACTIONS (14)
  - Restlessness [Unknown]
  - Psychiatric symptom [Unknown]
  - Tension [Unknown]
  - Memory impairment [Unknown]
  - Mood altered [Unknown]
  - Anger [Recovering/Resolving]
  - Cognitive disorder [Unknown]
  - Frustration tolerance decreased [Unknown]
  - Therapeutic response unexpected [Unknown]
  - Obsessive thoughts [Unknown]
  - Depression [Unknown]
  - Mental impairment [Unknown]
  - Disturbance in attention [Unknown]
  - Insomnia [Unknown]

NARRATIVE: CASE EVENT DATE: 20091201
